FAERS Safety Report 5211954-8 (Version None)
Quarter: 2007Q1

REPORT INFORMATION
  Report Type: 
  Country: None (occurrence: None)
  Receive Date: 20070118
  Receipt Date: 20070112
  Transmission Date: 20070707
  Serious: Yes (Death, Hospitalization)
  Sender: FDA-Public Use
  Company Number: IT-AVENTIS-200710355GDDC

PATIENT
  Age: 72 Year
  Sex: Male

DRUGS (6)
  1. ARAVA [Suspect]
     Indication: RHEUMATOID ARTHRITIS
     Route: 048
     Dates: start: 20061228
  2. METHOTREXATE [Suspect]
     Indication: RHEUMATOID ARTHRITIS
     Dates: start: 20061228
  3. OPTINATE [Concomitant]
     Dosage: DOSE: UNK
     Route: 048
     Dates: start: 20061220
  4. DELTACORTENE [Concomitant]
     Route: 048
     Dates: start: 20061220, end: 20061222
  5. DELTACORTENE [Concomitant]
     Route: 048
     Dates: start: 20061223
  6. ANTACID TAB [Concomitant]
     Dosage: DOSE: UNK
     Dates: start: 20061220

REACTIONS (4)
  - HEPATITIS [None]
  - HYPERAMMONAEMIA [None]
  - PANCYTOPENIA [None]
  - TRANSAMINASES INCREASED [None]
